FAERS Safety Report 13567621 (Version 1)
Quarter: 2017Q2

REPORT INFORMATION
  Report Type: Spontaneous
  Country: US (occurrence: US)
  Receive Date: 20170522
  Receipt Date: 20170522
  Transmission Date: 20170830
  Serious: Yes (Hospitalization, Other)
  Sender: FDA-Public Use
  Company Number: US-TEVA-743205USA

PATIENT
  Sex: Female

DRUGS (1)
  1. JUNEL [Suspect]
     Active Substance: ETHINYL ESTRADIOL\NORETHINDRONE ACETATE
     Dosage: 21 DAY, 1/20 MICROGRAM
     Route: 065
     Dates: start: 2016, end: 201702

REACTIONS (2)
  - Pulmonary embolism [Unknown]
  - Thrombosis [Unknown]
